FAERS Safety Report 18618408 (Version 1)
Quarter: 2020Q4

REPORT INFORMATION
  Report Type: Report from Study
  Country: None (occurrence: US)
  Receive Date: 20201215
  Receipt Date: 20201215
  Transmission Date: 20210114
  Serious: Yes (Other)
  Sender: FDA-Public Use
  Company Number: US-BIOVITRUM-2020US6855

PATIENT
  Age: 50 Year
  Sex: Female

DRUGS (11)
  1. ADVIL [Concomitant]
     Active Substance: IBUPROFEN
  2. METHOTREXATE. [Concomitant]
     Active Substance: METHOTREXATE
  3. HYDROXYCHLOROQUINE [Concomitant]
     Active Substance: HYDROXYCHLOROQUINE
  4. LISINOPRIL. [Concomitant]
     Active Substance: LISINOPRIL
  5. KINERET [Suspect]
     Active Substance: ANAKINRA
     Route: 058
     Dates: start: 20201111
  6. LEVOTHYROXINE. [Concomitant]
     Active Substance: LEVOTHYROXINE
  7. CARVEDILOL. [Concomitant]
     Active Substance: CARVEDILOL
  8. KINERET [Suspect]
     Active Substance: ANAKINRA
     Indication: PRODUCT USED FOR UNKNOWN INDICATION
     Route: 058
     Dates: start: 20201124
  9. PANTOPRAZOLE [Concomitant]
     Active Substance: PANTOPRAZOLE
  10. MITIGARE [Concomitant]
     Active Substance: COLCHICINE
  11. FOLIC ACID. [Concomitant]
     Active Substance: FOLIC ACID

REACTIONS (3)
  - COVID-19 [Unknown]
  - Injection site pain [Unknown]
  - Injection site erythema [Unknown]

NARRATIVE: CASE EVENT DATE: 20201205
